FAERS Safety Report 7956006-9 (Version None)
Quarter: 2011Q4

REPORT INFORMATION
  Report Type: 
  Country: None (occurrence: None)
  Receive Date: 20111205
  Receipt Date: 20111125
  Transmission Date: 20120403
  Serious: Yes (Disabling)
  Sender: FDA-Public Use
  Company Number: GB-AMGEN-GBRSP2011062438

PATIENT
  Age: 83 Year
  Sex: Female
  Weight: 73.25 kg

DRUGS (5)
  1. PROLIA [Suspect]
     Indication: PRODUCT USED FOR UNKNOWN INDICATION
     Dosage: UNK
     Dates: start: 20110920
  2. RANITIDINE [Concomitant]
     Dosage: UNK
     Dates: start: 20110831, end: 20110930
  3. HYPROMELLOSE [Concomitant]
     Dosage: UNK
     Dates: start: 20110906, end: 20111004
  4. ACETAMINOPHEN [Concomitant]
     Dosage: UNK
     Dates: start: 20110831, end: 20110928
  5. TRAMADOL HCL [Concomitant]
     Dosage: UNK
     Dates: start: 20110906, end: 20110918

REACTIONS (3)
  - SKIN EXFOLIATION [None]
  - URINARY INCONTINENCE [None]
  - DRUG ERUPTION [None]
